FAERS Safety Report 8076467-7 (Version None)
Quarter: 2012Q1

REPORT INFORMATION
  Report Type: 
  Country: None (occurrence: None)
  Receive Date: 20120127
  Receipt Date: 20120115
  Transmission Date: 20120608
  Serious: Yes (Disabling)
  Sender: FDA-Public Use
  Company Number: DE-UCBSA-044753

PATIENT
  Sex: Female
  Weight: 68 kg

DRUGS (3)
  1. KEPPRA [Suspect]
     Indication: EPILEPSY
     Dosage: FOR SEVERAL YEARS
     Route: 048
     Dates: start: 20050401
  2. METOPROLOL TARTRATE [Concomitant]
     Indication: HYPERTENSION
     Route: 048
     Dates: start: 20000101
  3. CARBAMAZEPINE [Concomitant]
     Indication: EPILEPSY
     Route: 048
     Dates: start: 20080101

REACTIONS (4)
  - IRON DEFICIENCY [None]
  - ARTHRALGIA [None]
  - MYALGIA [None]
  - RASH [None]
